FAERS Safety Report 15583220 (Version 1)
Quarter: 2018Q4

REPORT INFORMATION
  Report Type: Spontaneous
  Country: US (occurrence: US)
  Receive Date: 20181103
  Receipt Date: 20181103
  Transmission Date: 20190205
  Serious: No
  Sender: FDA-Public Use
  Company Number: US-TEVA-2018-US-969609

PATIENT
  Sex: Female

DRUGS (1)
  1. QVAR [Suspect]
     Active Substance: BECLOMETHASONE DIPROPIONATE
     Dosage: 1 PUMP
     Route: 055

REACTIONS (13)
  - Sinus disorder [Unknown]
  - Blood glucose decreased [Unknown]
  - Nasal polyps [Unknown]
  - Fatigue [Unknown]
  - Yawning [Unknown]
  - Chest discomfort [Unknown]
  - Insomnia [Unknown]
  - Inappropriate schedule of product administration [Unknown]
  - Hyperhidrosis [Unknown]
  - Hunger [Unknown]
  - Rhinorrhoea [Unknown]
  - Dizziness [Unknown]
  - Symptom recurrence [Unknown]
